FAERS Safety Report 5480281-6 (Version None)
Quarter: 2007Q4

REPORT INFORMATION
  Report Type: 
  Country: None (occurrence: None)
  Receive Date: 20071003
  Receipt Date: 20070919
  Transmission Date: 20080405
  Serious: Yes (Other)
  Sender: FDA-Public Use
  Company Number: 2007001841

PATIENT
  Age: 55 Year
  Sex: Male

DRUGS (1)
  1. MACUGEN [Suspect]
     Indication: MACULAR DEGENERATION
     Dosage: 0.3 MG, INTRA-VITERAL
     Dates: start: 20070917, end: 20070917

REACTIONS (5)
  - BLINDNESS TRANSIENT [None]
  - EYE HAEMORRHAGE [None]
  - IATROGENIC INJURY [None]
  - INTRAOCULAR PRESSURE INCREASED [None]
  - VASCULAR INJURY [None]
